FAERS Safety Report 4596805-7 (Version None)
Quarter: 2005Q1

REPORT INFORMATION
  Report Type: 
  Country: None (occurrence: None)
  Receive Date: 20050228
  Receipt Date: 20050216
  Transmission Date: 20050727
  Serious: Yes (Other)
  Sender: FDA-Public Use
  Company Number: 200510684BCC

PATIENT
  Age: 41 Year
  Sex: Female
  Weight: 68.0396 kg

DRUGS (2)
  1. BAYER PLUS (ASPIRIN) [Suspect]
     Indication: HEADACHE
     Dosage: 500 MG, TOTAL DAILY, ORAL
     Route: 048
     Dates: start: 20041227
  2. DIOVAN [Concomitant]

REACTIONS (1)
  - DEAFNESS UNILATERAL [None]
